FAERS Safety Report 5367031-9 (Version None)
Quarter: 2007Q2

REPORT INFORMATION
  Report Type: 
  Country: None (occurrence: None)
  Receive Date: 20070622
  Receipt Date: 20070615
  Transmission Date: 20071010
  Serious: Yes (Hospitalization)
  Sender: FDA-Public Use
  Company Number: A0656951A

PATIENT
  Sex: Female

DRUGS (7)
  1. COREG [Suspect]
     Indication: DRUG USE FOR UNKNOWN INDICATION
     Dosage: 12.5MG TWICE PER DAY
     Route: 048
     Dates: start: 20030101
  2. WARFARIN SODIUM [Concomitant]
  3. LISINOPRIL [Concomitant]
  4. POTASSIUM ACETATE [Concomitant]
  5. FUROSEMIDE [Concomitant]
  6. DIOVAN [Concomitant]
  7. THYROID TAB [Concomitant]

REACTIONS (1)
  - HYPERTENSION [None]
